FAERS Safety Report 12546269 (Version 4)
Quarter: 2017Q1

REPORT INFORMATION
  Report Type: Report from Study
  Country: KR (occurrence: KR)
  Receive Date: 20160711
  Receipt Date: 20170118
  Transmission Date: 20170428
  Serious: Yes (Hospitalization)
  Sender: FDA-Public Use
  Company Number: KR-JNJFOC-20160700175

PATIENT
  Age: 49 Year
  Sex: Male
  Weight: 50 kg

DRUGS (10)
  1. DIABEX [Concomitant]
     Active Substance: METFORMIN HYDROCHLORIDE
     Indication: DIABETES MELLITUS
     Dosage: 1 TABLET
     Route: 048
     Dates: start: 20121012
  2. HEPA MERZ [Concomitant]
     Indication: CIRRHOSIS ALCOHOLIC
     Dosage: 1 PACKET
     Route: 048
     Dates: start: 20060703
  3. WELLTAMIN [Concomitant]
     Indication: CIRRHOSIS ALCOHOLIC
     Dosage: 1 CAPSULE
     Route: 048
     Dates: start: 20090319
  4. DAIVOBET [Concomitant]
     Active Substance: BETAMETHASONE DIPROPIONATE\CALCIPOTRIENE
     Indication: PSORIASIS
     Route: 048
     Dates: start: 20150515
  5. ALCOHOL. [Suspect]
     Active Substance: ALCOHOL
     Indication: PRODUCT USED FOR UNKNOWN INDICATION
     Route: 065
  6. ATIVAN [Concomitant]
     Active Substance: LORAZEPAM
     Indication: ALCOHOLISM
     Dosage: 3 TABLETS
     Route: 048
     Dates: start: 20130826
  7. XAMIOL [Concomitant]
     Active Substance: BETAMETHASONE DIPROPIONATE\CALCIPOTRIENE HYDRATE
     Indication: PSORIASIS
     Route: 048
     Dates: start: 20141103
  8. INDENOL [Concomitant]
     Active Substance: PROPRANOLOL HYDROCHLORIDE
     Indication: VARICES OESOPHAGEAL
     Dosage: 1 TABLET
     Route: 048
     Dates: start: 20150722
  9. STELARA [Suspect]
     Active Substance: USTEKINUMAB
     Indication: PSORIASIS
     Dosage: APPROXIMATE TOTAL NUMBER OF INJECTIONS RECEIVED: 2
     Route: 058
     Dates: start: 20160422, end: 20160822
  10. LEGALON [Concomitant]
     Active Substance: MILK THISTLE
     Indication: CIRRHOSIS ALCOHOLIC
     Dosage: 2 CAPSULE
     Route: 048
     Dates: start: 20150806

REACTIONS (1)
  - Alcoholic liver disease [Recovered/Resolved]

NARRATIVE: CASE EVENT DATE: 20160513
